FAERS Safety Report 10163891 (Version 4)
Quarter: 2014Q2

REPORT INFORMATION
  Report Type: Spontaneous
  Country: VE (occurrence: VE)
  Receive Date: 20140510
  Receipt Date: 20140617
  Transmission Date: 20141212
  Serious: Yes (Other)
  Sender: FDA-Public Use
  Company Number: PHHY2014VE056547

PATIENT
  Age: 21 Year
  Sex: Male

DRUGS (11)
  1. TRILEPTAL [Suspect]
     Indication: PSYCHOTIC DISORDER
     Dosage: 300 MG, DAILY
     Route: 048
     Dates: start: 2007
  2. TRILEPTAL [Suspect]
     Indication: EPILEPSY
  3. TRILEPTAL [Suspect]
     Indication: OFF LABEL USE
  4. TRILEPTAL [Suspect]
     Indication: RESTLESSNESS
  5. LEPONEX [Suspect]
     Indication: SCHIZOPHRENIA, PARANOID TYPE
     Dosage: 150 MG, DAILY
     Route: 048
     Dates: start: 2007, end: 20140420
  6. RIVOTRIL [Concomitant]
     Indication: PSYCHOTIC DISORDER
     Dosage: 2 MG, DAILY
     Route: 048
     Dates: start: 2007
  7. RIVOTRIL [Concomitant]
     Indication: EPILEPSY
  8. RIVOTRIL [Concomitant]
     Indication: SLEEP DISORDER
  9. VALPROIC ACID [Concomitant]
     Indication: EPILEPSY
     Dosage: UNK UKN, UNK
     Dates: start: 2013
  10. VALPROIC ACID [Concomitant]
     Indication: CONVULSION
  11. CLONAC//CLONAZEPAM [Concomitant]
     Indication: SLEEP DISORDER
     Dosage: 2 MG, DAILY
     Route: 048
     Dates: start: 2007

REACTIONS (6)
  - Intentional self-injury [Not Recovered/Not Resolved]
  - Tongue biting [Not Recovered/Not Resolved]
  - Convulsion [Recovered/Resolved]
  - General physical health deterioration [Recovering/Resolving]
  - Feeling abnormal [Recovering/Resolving]
  - Aggression [Not Recovered/Not Resolved]
